FAERS Safety Report 8000302-6 (Version None)
Quarter: 2011Q4

REPORT INFORMATION
  Report Type: 
  Country: None (occurrence: None)
  Receive Date: 20111216
  Receipt Date: 20111025
  Transmission Date: 20120403
  Serious: Yes (Other)
  Sender: FDA-Public Use
  Company Number: 7101133

PATIENT
  Age: 42 Year
  Sex: Female

DRUGS (4)
  1. RITONAVIR [Suspect]
     Indication: HIV INFECTION
     Dates: start: 20050301
  2. FOSAMPRENAVIR CALCIUM [Suspect]
     Indication: HIV INFECTION
     Dates: start: 20050301
  3. LEVOTHYROXINE SODIUM [Suspect]
     Indication: THYROID CYST
     Dosage: (100 MCG)
     Dates: start: 20061101
  4. NEVIRAPINE [Suspect]

REACTIONS (2)
  - BLOOD THYROID STIMULATING HORMONE INCREASED [None]
  - DRUG INTERACTION [None]
